FAERS Safety Report 6256004-X (Version None)
Quarter: 2009Q2

REPORT INFORMATION
  Report Type: 
  Country: None (occurrence: None)
  Receive Date: 20090630
  Receipt Date: 20090630
  Transmission Date: 20091009
  Serious: Yes (Hospitalization)
  Sender: FDA-Public Use
  Company Number: None

PATIENT
  Age: 56 Year
  Sex: Female

DRUGS (5)
  1. AVASTIN [Suspect]
     Indication: OVARIAN CANCER METASTATIC
     Dosage: 900 MG WEEKLY IV
     Route: 042
     Dates: start: 20090604, end: 20090611
  2. AVASTIN [Suspect]
  3. WARFARIN [Concomitant]
  4. CYCLOPHOSPHAMIDE [Concomitant]
  5. DYAZIDE [Concomitant]

REACTIONS (3)
  - BLINDNESS [None]
  - CONFUSIONAL STATE [None]
  - HEADACHE [None]
